FAERS Safety Report 17824099 (Version 1)
Quarter: 2020Q2

REPORT INFORMATION
  Report Type: Spontaneous
  Country: US (occurrence: US)
  Receive Date: 20200526
  Receipt Date: 20200526
  Transmission Date: 20200714
  Serious: No
  Sender: FDA-Public Use
  Company Number: US-PFIZER INC-2020205550

PATIENT
  Age: 68 Year
  Sex: Female
  Weight: 97.51 kg

DRUGS (12)
  1. ALBUTEROL SULFATE. [Concomitant]
     Active Substance: ALBUTEROL SULFATE
     Dosage: UNK
     Dates: start: 200710
  2. NITROGLYCERINE [Concomitant]
     Active Substance: NITROGLYCERIN
     Dosage: 0.4 MG
     Route: 060
     Dates: start: 200505
  3. CARVEDILOL. [Concomitant]
     Active Substance: CARVEDILOL
     Dosage: 6.25 MG
     Dates: start: 200505
  4. HYDROXYCHLOROQUINE SULFATE. [Concomitant]
     Active Substance: HYDROXYCHLOROQUINE SULFATE
     Dosage: 200 MG
     Dates: start: 201408
  5. CARISOPRODOL. [Concomitant]
     Active Substance: CARISOPRODOL
     Dosage: 350 MG
     Dates: start: 200710
  6. LIDOCAINE. [Concomitant]
     Active Substance: LIDOCAINE
     Dosage: UNK
     Dates: start: 200710
  7. GABAPENTIN. [Concomitant]
     Active Substance: GABAPENTIN
     Dosage: 600 MG
     Dates: start: 198909
  8. PRAMIPEXOLE DIHYDROCHLORIDE. [Concomitant]
     Active Substance: PRAMIPEXOLE DIHYDROCHLORIDE
     Dosage: 1 MG
     Dates: start: 201808
  9. XELJANZ XR [Suspect]
     Active Substance: TOFACITINIB CITRATE
     Indication: ARTHRITIS
     Dosage: 11 MG, 1X/DAY
     Dates: start: 201808, end: 201910
  10. ALBUTEROL SULFATE. [Concomitant]
     Active Substance: ALBUTEROL SULFATE
     Dosage: UNK
     Dates: start: 200710
  11. ISOSORBIDE DN [Concomitant]
     Dosage: 30 MG
     Dates: start: 200505
  12. EZETIMIBE. [Concomitant]
     Active Substance: EZETIMIBE
     Dosage: UNK
     Dates: start: 201706

REACTIONS (1)
  - Drug ineffective [Unknown]
